FAERS Safety Report 13507384 (Version 1)
Quarter: 2017Q2

REPORT INFORMATION
  Report Type: Spontaneous
  Country: US (occurrence: US)
  Receive Date: 20170502
  Receipt Date: 20170502
  Transmission Date: 20170830
  Serious: No
  Sender: FDA-Public Use
  Company Number: None

PATIENT
  Age: 69 Year
  Sex: Male
  Weight: 113.4 kg

DRUGS (2)
  1. CEPHALEXIN. [Suspect]
     Active Substance: CEPHALEXIN
     Indication: CELLULITIS
     Route: 048
     Dates: start: 20170207, end: 20170215
  2. ACETAMINOPHEN/HYDROCODONE [Suspect]
     Active Substance: ACETAMINOPHEN\HYDROCODONE
     Indication: PAIN
     Dates: start: 20170207

REACTIONS (4)
  - Swelling face [None]
  - Rash [None]
  - Urticaria [None]
  - Lip swelling [None]

NARRATIVE: CASE EVENT DATE: 20170215
